FAERS Safety Report 13166156 (Version 3)
Quarter: 2017Q1

REPORT INFORMATION
  Report Type: Report from Study
  Country: GB (occurrence: GB)
  Receive Date: 20170131
  Receipt Date: 20170210
  Transmission Date: 20170428
  Serious: Yes (Hospitalization)
  Sender: FDA-Public Use
  Company Number: PHHY2016GB180242

PATIENT
  Sex: Male

DRUGS (4)
  1. OMNITROPE [Suspect]
     Active Substance: SOMATROPIN
     Indication: PRODUCT USED FOR UNKNOWN INDICATION
     Dosage: 0.1 MG, QD
     Route: 058
  2. OMNITROPE [Suspect]
     Active Substance: SOMATROPIN
     Dosage: 0.1 MG, UNK
     Route: 065
     Dates: start: 20170126, end: 20170127
  3. OMNITROPE [Suspect]
     Active Substance: SOMATROPIN
     Dosage: 0.1 MG, UNK
     Route: 065
     Dates: start: 20170123, end: 20170124
  4. OMNITROPE [Suspect]
     Active Substance: SOMATROPIN
     Dosage: 01 MG, UNK
     Route: 065
     Dates: start: 20170129

REACTIONS (2)
  - Pneumonia [Unknown]
  - Malaise [Unknown]
